FAERS Safety Report 13234119 (Version 1)
Quarter: 2017Q1

REPORT INFORMATION
  Report Type: Spontaneous
  Country: US (occurrence: US)
  Receive Date: 20170214
  Receipt Date: 20170214
  Transmission Date: 20170428
  Serious: Yes (Other)
  Sender: FDA-Public Use
  Company Number: None

PATIENT
  Age: 26 Year
  Sex: Female
  Weight: 65 kg

DRUGS (1)
  1. BOTOX [Suspect]
     Active Substance: ONABOTULINUMTOXINA
     Indication: SKIN WRINKLING
     Dosage: 20 UNITS INJECTED INTO FACE
     Dates: start: 20170209

REACTIONS (13)
  - Palpitations [None]
  - Fatigue [None]
  - Dyspnoea [None]
  - Eye pain [None]
  - Fear [None]
  - Chest discomfort [None]
  - Anxiety [None]
  - Pharyngeal hypoaesthesia [None]
  - Dizziness [None]
  - Asthenia [None]
  - Gait disturbance [None]
  - Memory impairment [None]
  - Pyrexia [None]

NARRATIVE: CASE EVENT DATE: 20170209
